FAERS Safety Report 6233403-3 (Version None)
Quarter: 2009Q2

REPORT INFORMATION
  Report Type: 
  Country: None (occurrence: None)
  Receive Date: 20090616
  Receipt Date: 20090616
  Transmission Date: 20091009
  Serious: No
  Sender: FDA-Public Use
  Company Number: None

PATIENT
  Sex: Female
  Weight: 44 kg

DRUGS (5)
  1. DAUNORUBICIN HCL [Suspect]
     Dosage: 34 MG
     Dates: end: 20090519
  2. ONCASPAR [Suspect]
     Dosage: 566.6 UNIT
     Dates: end: 20090522
  3. PREDNISONE TAB [Suspect]
     Dosage: 320 MG
     Dates: end: 20090522
  4. VINCRISTINE SULFATE [Suspect]
     Dosage: 2 MG
     Dates: end: 20090519
  5. CYTARABINE [Suspect]
     Dosage: 70 MG
     Dates: end: 20090518

REACTIONS (4)
  - CONGENITAL CYSTIC KIDNEY DISEASE [None]
  - HAEMATURIA [None]
  - HYPERSENSITIVITY [None]
  - HYPERTENSION [None]
